FAERS Safety Report 20863407 (Version 1)
Quarter: 2022Q2

REPORT INFORMATION
  Report Type: Spontaneous
  Country: US (occurrence: US)
  Receive Date: 20220523
  Receipt Date: 20220523
  Transmission Date: 20220721
  Serious: No
  Sender: FDA-Public Use
  Company Number: US-BRISTOL-MYERS SQUIBB COMPANY-2022-038130

PATIENT
  Age: 85 Year
  Sex: Male

DRUGS (1)
  1. REVLIMID [Suspect]
     Active Substance: LENALIDOMIDE
     Indication: Mantle cell lymphoma
     Dosage: TAKE 1 CAPSULE BY MOUTH ONCE DAILY FOR 21DAYS ON, 7 DAYS OFF
     Route: 048
     Dates: start: 20220126

REACTIONS (1)
  - Diarrhoea [Unknown]
